FAERS Safety Report 13441191 (Version 1)
Quarter: 2017Q2

REPORT INFORMATION
  Report Type: Spontaneous
  Country: GB (occurrence: GB)
  Receive Date: 20170413
  Receipt Date: 20170413
  Transmission Date: 20170830
  Serious: Yes (Other)
  Sender: FDA-Public Use
  Company Number: GB-009507513-1603GBR010132

PATIENT
  Age: 63 Year
  Sex: Female

DRUGS (2)
  1. PREDNISOLONE. [Interacting]
     Active Substance: PREDNISOLONE
     Route: 048
  2. ALENDRONATE SODIUM. [Suspect]
     Active Substance: ALENDRONATE SODIUM
     Dosage: 70 MG, QW (70 MG/WEEK)
     Route: 048

REACTIONS (2)
  - Osteonecrosis of jaw [Unknown]
  - Drug interaction [Unknown]
